FAERS Safety Report 24007188 (Version 3)
Quarter: 2025Q1

REPORT INFORMATION
  Report Type: Spontaneous
  Country: US (occurrence: US)
  Receive Date: 20240624
  Receipt Date: 20250226
  Transmission Date: 20250409
  Serious: No
  Sender: BIOGEN
  Company Number: US-BIOGEN-2024BI01270138

PATIENT
  Age: 36 Year
  Sex: Female

DRUGS (1)
  1. SKYCLARYS [Suspect]
     Active Substance: OMAVELOXOLONE
     Indication: Friedreich^s ataxia
     Route: 050

REACTIONS (2)
  - Alanine aminotransferase increased [Recovered/Resolved]
  - Communication disorder [Unknown]

NARRATIVE: CASE EVENT DATE: 20240513
